FAERS Safety Report 6733017-2 (Version None)
Quarter: 2010Q2

REPORT INFORMATION
  Report Type: 
  Country: None (occurrence: None)
  Receive Date: 20100517
  Receipt Date: 20100430
  Transmission Date: 20101027
  Serious: Yes (Hospitalization, Other)
  Sender: FDA-Public Use
  Company Number: 2010SCP000436

PATIENT
  Age: 80 Year
  Sex: Male

DRUGS (1)
  1. CABERGOLINE [Suspect]
     Indication: PARKINSON'S DISEASE
     Dosage: 3 MG DAILY

REACTIONS (21)
  - ABNORMAL BEHAVIOUR [None]
  - AORTIC VALVE CALCIFICATION [None]
  - BLOOD ALBUMIN DECREASED [None]
  - BLOOD GLUCOSE INCREASED [None]
  - DISORIENTATION [None]
  - DRUG HYPERSENSITIVITY [None]
  - DYSPNOEA [None]
  - GAIT DISTURBANCE [None]
  - LUNG DISORDER [None]
  - LYMPHOCYTE STIMULATION TEST POSITIVE [None]
  - MEMORY IMPAIRMENT [None]
  - MITRAL VALVE CALCIFICATION [None]
  - OEDEMA PERIPHERAL [None]
  - PARKINSONISM [None]
  - PLEURAL EFFUSION [None]
  - PNEUMONIA ASPIRATION [None]
  - POLLAKIURIA [None]
  - PULMONARY OEDEMA [None]
  - RED BLOOD CELL SEDIMENTATION RATE INCREASED [None]
  - RESPIRATORY FAILURE [None]
  - TUBERCULIN TEST POSITIVE [None]
